FAERS Safety Report 9303959 (Version 1)
Quarter: 2013Q2

REPORT INFORMATION
  Report Type: Spontaneous
  Country: US (occurrence: US)
  Receive Date: 20130522
  Receipt Date: 20130522
  Transmission Date: 20140414
  Serious: No
  Sender: FDA-Public Use
  Company Number: US-ASTRAZENECA-2013SE32171

PATIENT
  Age: 55 Year
  Sex: Female

DRUGS (4)
  1. NEXIUM [Suspect]
     Indication: GASTROOESOPHAGEAL REFLUX DISEASE
     Route: 048
     Dates: end: 20130503
  2. NEXIUM [Suspect]
     Indication: GASTROOESOPHAGEAL REFLUX DISEASE
     Route: 048
     Dates: start: 20130407
  3. MULTIVITAMINS [Concomitant]
  4. CALCIUM SUPPLEMENTS [Concomitant]

REACTIONS (6)
  - Pain [Recovering/Resolving]
  - Dysphonia [Recovering/Resolving]
  - Chest pain [Recovering/Resolving]
  - Flatulence [Recovering/Resolving]
  - Frequent bowel movements [Recovering/Resolving]
  - Constipation [Unknown]
